FAERS Safety Report 5077389-6 (Version None)
Quarter: 2006Q3

REPORT INFORMATION
  Report Type: 
  Country: None (occurrence: None)
  Receive Date: 20060810
  Receipt Date: 20060209
  Transmission Date: 20061208
  Serious: No
  Sender: FDA-Public Use
  Company Number: US-GLAXOSMITHKLINE-A0593059A

PATIENT
  Age: 61 Year
  Sex: Female

DRUGS (7)
  1. PAROXETINE HCL [Suspect]
     Indication: DEPRESSION
     Dosage: 30MG PER DAY
     Route: 048
     Dates: start: 20050401, end: 20050701
  2. METHOTREXATE [Concomitant]
  3. FOLIC ACID [Concomitant]
  4. PREDNISONE [Concomitant]
  5. NABUMETONE [Concomitant]
  6. ALBUTEROL SPIROS [Concomitant]
  7. SPIRIVA [Concomitant]

REACTIONS (1)
  - DRUG INEFFECTIVE [None]
